FAERS Safety Report 8171693-0 (Version None)
Quarter: 2012Q1

REPORT INFORMATION
  Report Type: 
  Country: None (occurrence: None)
  Receive Date: 20120228
  Receipt Date: 20120221
  Transmission Date: 20120608
  Serious: Yes (Disabling, Other)
  Sender: FDA-Public Use
  Company Number: US-TEVA-323889USA

PATIENT
  Sex: Female
  Weight: 156 kg

DRUGS (3)
  1. ACETYLSALICYLIC ACID SRT [Suspect]
     Indication: CARDIOVASCULAR EVENT PROPHYLAXIS
  2. PREGABALIN [Suspect]
     Indication: NEUROPATHY PERIPHERAL
     Dosage: 4X/DAY
  3. NORTRIPTYLINE HCL [Suspect]
     Indication: MUSCLE SPASMS
     Dosage: 25 MILLIGRAM;

REACTIONS (9)
  - ARTHRITIS [None]
  - GAIT DISTURBANCE [None]
  - DYSMORPHISM [None]
  - DRUG INEFFECTIVE [None]
  - HYPOAESTHESIA ORAL [None]
  - GOUT [None]
  - MUSCLE SPASMS [None]
  - MUSCULOSKELETAL STIFFNESS [None]
  - PAIN IN EXTREMITY [None]
